FAERS Safety Report 5792720-1 (Version None)
Quarter: 2008Q2

REPORT INFORMATION
  Report Type: 
  Country: None (occurrence: None)
  Receive Date: 20080624
  Receipt Date: 20080611
  Transmission Date: 20081010
  Serious: Yes (Life-Threatening, Hospitalization)
  Sender: FDA-Public Use
  Company Number: US-JNJFOC-20080302982

PATIENT
  Age: 65 Year
  Sex: Female
  Weight: 102.5 kg

DRUGS (23)
  1. DECITABINE (DECITABINE) LYOPHILIZED POWDER [Suspect]
     Indication: MYELODYSPLASTIC SYNDROME
     Dosage: 20 MG/M2, INTRAVENOUS
     Route: 042
     Dates: start: 20080221, end: 20080225
  2. ZOFRAN (ONDANSETRON HYDROCHLORIDE) UNSPECIFIED [Concomitant]
  3. VALTREX (VALACICLOVIR HYDROCHLORIDE) UNSPECIFIED [Concomitant]
  4. TRIAMTERENE (TRIAMTERENE) UNSPECIFIED [Concomitant]
  5. HYDROCHLOROTHIAZIDE (HYDROCHLOROTHIAZIDE) UNSPECIFIED [Concomitant]
  6. TOPROL (METOPROLOL SUCCINATE) UNSPECIFIED [Concomitant]
  7. PERIOGARD (DISPRAY NO 1)) UNSPECIFIED [Concomitant]
  8. OMEPRAZOLE (OMEPRAZOLE) UNSPECIFIED [Concomitant]
  9. MAGNESIUM OXIDE (MAGNESIUM OXIDE) UNSPECIFIED [Concomitant]
  10. LUNESTA (HYPNOTICS AND SEDATIVES) UNSPECIFIED [Concomitant]
  11. LEVOTHYROXINE (LEVOTHYROXINE) UNSPECIFIED [Concomitant]
  12. LEVAQUIN [Concomitant]
  13. LASIX (FUROSEMIDE) UNSPECIFIED [Concomitant]
  14. HYDROCODONE (HYDROCODONE) UNSPECIFIED [Concomitant]
  15. TYLENOL (PARACETAMOL) UNSPECIFIED [Concomitant]
  16. DARVON (DEXTROPROPOXYPHENE HYDROCHLORIDE) UNSPECIFIED [Concomitant]
  17. CYMBALTA (ANTIDEPRESSANTS) UNSPECIFIED [Concomitant]
  18. CLARITIN (LORATADINE) UNSPECIFIED [Concomitant]
  19. CELEBREX (CELECOXIB) UNSPECIFIED [Concomitant]
  20. AMITRIPTYLINE (AMITRIPTYLINE) UNSPECIFIED [Concomitant]
  21. ALLOPURINOL (ALLOPURINOL) UNSPECIFIED [Concomitant]
  22. ALBUTEROL (SALBUTAMOL) UNSPECIFIED [Concomitant]
  23. ADVAIR (SERETIDE MITE) UNSPECIFIED [Concomitant]

REACTIONS (31)
  - ABASIA [None]
  - ARTHRALGIA [None]
  - ATELECTASIS [None]
  - ATRIAL FIBRILLATION [None]
  - BACILLUS INFECTION [None]
  - BACTERAEMIA [None]
  - BLOOD CULTURE POSITIVE [None]
  - BLOOD SODIUM DECREASED [None]
  - BONE MARROW FAILURE [None]
  - CARDIAC VALVE VEGETATION [None]
  - CONSTIPATION [None]
  - DIALYSIS [None]
  - EJECTION FRACTION DECREASED [None]
  - GASTROINTESTINAL HAEMORRHAGE [None]
  - HEADACHE [None]
  - HYPOTENSION [None]
  - INTESTINAL DILATATION [None]
  - LETHARGY [None]
  - LOBAR PNEUMONIA [None]
  - LOWER GASTROINTESTINAL HAEMORRHAGE [None]
  - MITRAL VALVE CALCIFICATION [None]
  - MUSCLE ABSCESS [None]
  - OSTEOMYELITIS ACUTE [None]
  - PSEUDOMONAL SEPSIS [None]
  - RECTAL HAEMORRHAGE [None]
  - RENAL FAILURE ACUTE [None]
  - RESPIRATORY FAILURE [None]
  - RETINAL DETACHMENT [None]
  - STAPHYLOCOCCAL SEPSIS [None]
  - VENTRICULAR EXTRASYSTOLES [None]
  - WHITE BLOOD CELL COUNT DECREASED [None]
